FAERS Safety Report 7938333-4 (Version None)
Quarter: 2011Q4

REPORT INFORMATION
  Report Type: 
  Country: None (occurrence: None)
  Receive Date: 20111123
  Receipt Date: 20111116
  Transmission Date: 20120403
  Serious: Yes (Hospitalization, Other)
  Sender: FDA-Public Use
  Company Number: JP-PFIZER INC-2011223679

PATIENT
  Age: 70 Year
  Sex: Male
  Weight: 54 kg

DRUGS (6)
  1. FOLIC ACID [Concomitant]
     Indication: PROPHYLAXIS
     Dosage: 5 MG, WEEKLY
     Route: 048
     Dates: start: 20080414, end: 20090522
  2. AZULFIDINE [Suspect]
     Indication: RHEUMATOID ARTHRITIS
     Dosage: 500 MG, 1X/DAY
     Route: 048
     Dates: start: 20080414, end: 20090522
  3. ENBREL [Suspect]
     Indication: RHEUMATOID ARTHRITIS
     Dosage: 25 MG, WEEKLY
     Route: 058
     Dates: start: 20090311, end: 20090511
  4. PEG-INTRON [Suspect]
     Indication: HEPATITIS C
     Dosage: 80 UG, WEEKLY
     Route: 058
     Dates: start: 20090109, end: 20090501
  5. VOLTAREN [Concomitant]
     Indication: ANALGESIC THERAPY
     Dosage: 25 MG, 1X/DAY
     Dates: start: 20090302, end: 20090522
  6. RHEUMATREX [Suspect]
     Indication: RHEUMATOID ARTHRITIS
     Dosage: 2 MG, 2X/WEEK
     Route: 048
     Dates: start: 20080414, end: 20090522

REACTIONS (1)
  - INTERSTITIAL LUNG DISEASE [None]
